FAERS Safety Report 20474470 (Version 1)
Quarter: 2022Q1

REPORT INFORMATION
  Report Type: Spontaneous
  Country: US (occurrence: None)
  Receive Date: 20220214
  Receipt Date: 20220214
  Transmission Date: 20220423
  Serious: Yes (Other)
  Sender: FDA-Public Use
  Company Number: None

PATIENT
  Age: 46 Year
  Sex: Male
  Weight: 83.25 kg

DRUGS (6)
  1. XIIDRA [Suspect]
     Active Substance: LIFITEGRAST
     Indication: Dry eye
     Dosage: OTHER QUANTITY : 1 VIAL;?FREQUENCY : EVERY 12 HOURS;?
     Dates: start: 20220202, end: 20220209
  2. AMLODIPINE [Concomitant]
     Active Substance: AMLODIPINE BESYLATE
  3. lisinopril/hctz 2 in morning [Concomitant]
  4. valiumn 10mg twice a day [Concomitant]
  5. praziocin [Concomitant]
  6. ADVIL [Concomitant]
     Active Substance: IBUPROFEN

REACTIONS (5)
  - Vision blurred [None]
  - Eye irritation [None]
  - Asthenopia [None]
  - Vertigo [None]
  - Mydriasis [None]

NARRATIVE: CASE EVENT DATE: 20220202
